FAERS Safety Report 9351453 (Version 1)
Quarter: 2013Q2

REPORT INFORMATION
  Report Type: Other
  Country: DE (occurrence: DE)
  Receive Date: 20130617
  Receipt Date: 20130617
  Transmission Date: 20140414
  Serious: Yes (Hospitalization)
  Sender: FDA-Public Use
  Company Number: DE-NICOBRDEVP-2013-10247

PATIENT
  Age: 34 Year
  Sex: Female

DRUGS (1)
  1. CIPROFLOXACIN HYDROCHLORIDE (UNKNOWN) [Suspect]
     Indication: TUBO-OVARIAN ABSCESS
     Dosage: 500MG ^DAILY DOSE: 2 DF DOSAGE FORM EVERY DAYS: [4 DF DOSAGE FORM {1 DF DOSAGE FORM, 2 IN 1 DAY}]
     Route: 048
     Dates: start: 20130405, end: 20130406

REACTIONS (3)
  - Lip swelling [Not Recovered/Not Resolved]
  - Skin reaction [Not Recovered/Not Resolved]
  - Urticaria [Not Recovered/Not Resolved]
